FAERS Safety Report 7933790-1 (Version None)
Quarter: 2011Q4

REPORT INFORMATION
  Report Type: 
  Country: None (occurrence: None)
  Receive Date: 20111122
  Receipt Date: 20111107
  Transmission Date: 20120403
  Serious: Yes (Hospitalization)
  Sender: FDA-Public Use
  Company Number: US-ROCHE-1012335

PATIENT
  Sex: Female

DRUGS (5)
  1. HERCEPTIN [Suspect]
     Dosage: MAINTENANCE DOSE
     Route: 042
  2. CARBOPLATIN [Suspect]
     Indication: BREAST CANCER
     Dosage: 2 AUC
     Route: 042
     Dates: start: 20050518
  3. HERCEPTIN [Suspect]
     Indication: BREAST CANCER
     Route: 042
     Dates: start: 20050518
  4. HERCEPTIN [Suspect]
     Route: 042
  5. IXABEPILONE [Suspect]
     Indication: BREAST CANCER
     Route: 042
     Dates: start: 20050518

REACTIONS (6)
  - URINARY TRACT INFECTION [None]
  - ANAEMIA [None]
  - HYPOTENSION [None]
  - BLOOD CREATININE INCREASED [None]
  - FATIGUE [None]
  - TUMOUR PAIN [None]
